FAERS Safety Report 25247134 (Version 3)
Quarter: 2025Q2

REPORT INFORMATION
  Report Type: Report from Study
  Country: US (occurrence: US)
  Receive Date: 20250428
  Receipt Date: 20250527
  Transmission Date: 20250716
  Serious: Yes (Death, Hospitalization, Other)
  Sender: TAIHO ONCOLOGY INC
  Company Number: US-TAIHOP-2024-012307

PATIENT
  Age: 78 Year
  Sex: Male

DRUGS (18)
  1. INQOVI [Suspect]
     Active Substance: CEDAZURIDINE\DECITABINE
     Indication: Myelodysplastic syndrome
     Dosage: 135MG (DECITABINE 35MG AND CEDAZURIDINE 100MG), 1-5 DAYS FOR 28DAYS CYCLE.?CURRENT CYCLE 5.
     Route: 048
     Dates: start: 20241022
  2. INQOVI [Suspect]
     Active Substance: CEDAZURIDINE\DECITABINE
     Dosage: 135MG (DECITABINE 35MG AND CEDAZURIDINE 100MG), 1-4 DAYS FOR 28DAYS CYCLE.?CYCLE UNKNOWN
     Route: 048
  3. INQOVI [Suspect]
     Active Substance: CEDAZURIDINE\DECITABINE
     Dosage: 135MG (DECITABINE 35MG AND CEDAZURIDINE 100MG), 1-3 DAYS FOR 28DAYS CYCLE.?CYCLE UNKNOWN
     Route: 048
  4. WARFARIN [Suspect]
     Active Substance: WARFARIN
     Indication: Product used for unknown indication
  5. ADDERALL [Concomitant]
     Active Substance: AMPHETAMINE ASPARTATE\AMPHETAMINE SULFATE\DEXTROAMPHETAMINE SACCHARATE\DEXTROAMPHETAMINE SULFATE
     Indication: Product used for unknown indication
  6. ATORVASTATIN [Concomitant]
     Active Substance: ATORVASTATIN
     Indication: Product used for unknown indication
  7. FUROSEMIDE [Concomitant]
     Active Substance: FUROSEMIDE
     Indication: Product used for unknown indication
  8. MEGARED OMGA [Concomitant]
     Indication: Product used for unknown indication
  9. MEGARED OMGA [Concomitant]
  10. METOPROL SUC [Concomitant]
     Indication: Product used for unknown indication
  11. METOPROLOL TARTRATE [Concomitant]
     Active Substance: METOPROLOL TARTRATE
     Indication: Product used for unknown indication
  12. OMEGA-3 ACIDS [Concomitant]
     Active Substance: OMEGA-3 FATTY ACIDS
     Indication: Product used for unknown indication
  13. PANTOPRAZOLE [Concomitant]
     Active Substance: PANTOPRAZOLE
     Indication: Product used for unknown indication
  14. TADALAFIL [Concomitant]
     Active Substance: TADALAFIL
     Indication: Product used for unknown indication
  15. TAMSULOSIN [Concomitant]
     Active Substance: TAMSULOSIN
     Indication: Product used for unknown indication
  16. TYLENOL [Concomitant]
     Active Substance: ACETAMINOPHEN
     Indication: Product used for unknown indication
  17. PROMACTA [Concomitant]
     Active Substance: ELTROMBOPAG OLAMINE
     Indication: Product used for unknown indication
  18. PROMACTA [Concomitant]
     Active Substance: ELTROMBOPAG OLAMINE

REACTIONS (12)
  - Death [Fatal]
  - Neutropenia [Not Recovered/Not Resolved]
  - Thrombocytopenia [Not Recovered/Not Resolved]
  - Anaemia [Not Recovered/Not Resolved]
  - Urinary tract infection [Not Recovered/Not Resolved]
  - Fatigue [Not Recovered/Not Resolved]
  - Decreased appetite [Not Recovered/Not Resolved]
  - Dyspnoea exertional [Not Recovered/Not Resolved]
  - Contusion [Not Recovered/Not Resolved]
  - Dysgeusia [Not Recovered/Not Resolved]
  - Fall [Not Recovered/Not Resolved]
  - Asthenia [Unknown]

NARRATIVE: CASE EVENT DATE: 20250506
